FAERS Safety Report 8073994-3 (Version None)
Quarter: 2012Q1

REPORT INFORMATION
  Report Type: 
  Country: None (occurrence: None)
  Receive Date: 20120126
  Receipt Date: 20120117
  Transmission Date: 20120608
  Serious: Yes (Other)
  Sender: FDA-Public Use
  Company Number: US-ELI_LILLY_AND_COMPANY-US201201005545

PATIENT
  Age: 47 Year
  Sex: Male

DRUGS (6)
  1. LIPITOR [Concomitant]
     Dosage: 40 MG, UNK
  2. IMDUR [Concomitant]
  3. EFFIENT [Suspect]
     Dosage: 10 MG, QD
     Dates: start: 20110101
  4. ZETIA [Concomitant]
  5. AMLODIPINE [Concomitant]
     Dosage: 5 MG, UNK
  6. ASPIRIN [Concomitant]

REACTIONS (1)
  - HALLUCINATION [None]
